FAERS Safety Report 9241479 (Version 1)
Quarter: 2013Q2

REPORT INFORMATION
  Report Type: Spontaneous
  Country: US (occurrence: US)
  Receive Date: 20130419
  Receipt Date: 20130419
  Transmission Date: 20140414
  Serious: Yes (Other)
  Sender: FDA-Public Use
  Company Number: US-009507513-1304USA007959

PATIENT
  Age: 7 Year
  Sex: Female

DRUGS (3)
  1. TEMODAR [Suspect]
     Indication: BRAIN STEM GLIOMA
     Dosage: 200 MG/M^2/D X 5 DAYS EVERY 28 DAYS
     Route: 048
  2. BEVACIZUMAB [Suspect]
     Indication: BRAIN STEM GLIOMA
     Dosage: I0MG/KG/DOSE EVERY 14 DAYS.
     Route: 042
  3. DEXAMETHASONE [Concomitant]

REACTIONS (4)
  - Pancreatitis [Recovered/Resolved]
  - Hypertension [Recovered/Resolved]
  - Lymphopenia [Unknown]
  - Impaired healing [Recovered/Resolved]
